FAERS Safety Report 9513753 (Version 4)
Quarter: 2013Q4

REPORT INFORMATION
  Report Type: Report from Study
  Country: MX (occurrence: MX)
  Receive Date: 20130910
  Receipt Date: 20131028
  Transmission Date: 20140711
  Serious: Yes (Other)
  Sender: FDA-Public Use
  Company Number: MX-ROCHE-1270224

PATIENT
  Age: 60 Year
  Sex: Female

DRUGS (6)
  1. BLINDED PEG-INTERFERON ALFA 2A [Suspect]
     Indication: CHRONIC HEPATITIS C
     Dosage: 1 DOSAGE FORM 1 DAY
     Route: 058
     Dates: start: 20130723, end: 20130820
  2. RIBAVIRIN [Suspect]
     Indication: CHRONIC HEPATITIS C
     Route: 048
     Dates: start: 20130723, end: 20130820
  3. BLINDED PEG-INTERFERON LAMBDA [Suspect]
     Indication: CHRONIC HEPATITIS C
     Dosage: 1 DOSAGE FORM 1 DAY
     Route: 058
     Dates: start: 20130723, end: 20130820
  4. BLINDED DACLATASVIR [Suspect]
     Indication: CHRONIC HEPATITIS C
     Dosage: 1 DOSAGE FORM 1 DAY
     Route: 048
     Dates: start: 20130723, end: 20130819
  5. CHLORTHALIDONE [Concomitant]
  6. TELMISARTAN [Concomitant]

REACTIONS (1)
  - Hyperbilirubinaemia [Recovered/Resolved]
